FAERS Safety Report 6900181-1 (Version None)
Quarter: 2010Q3

REPORT INFORMATION
  Report Type: 
  Country: None (occurrence: None)
  Receive Date: 20100803
  Receipt Date: 20100721
  Transmission Date: 20110219
  Serious: Yes (Other)
  Sender: FDA-Public Use
  Company Number: DE-ELI_LILLY_AND_COMPANY-DE201007004289

PATIENT
  Sex: Female
  Weight: 110 kg

DRUGS (3)
  1. ZYPADHERA [Suspect]
     Indication: MENTAL DISORDER
     Dosage: 300 MG, EVERY TWO WEEKS
     Route: 030
     Dates: start: 20091201
  2. ZYPADHERA [Suspect]
     Dosage: 405 MG, EVERY FOUR WEEKS
     Route: 030
  3. CHLORHEXIDINE GLUCONATE [Concomitant]

REACTIONS (1)
  - GINGIVITIS [None]
